FAERS Safety Report 22836511 (Version 3)
Quarter: 2023Q4

REPORT INFORMATION
  Report Type: Report from Study
  Country: US (occurrence: US)
  Receive Date: 20230818
  Receipt Date: 20231023
  Transmission Date: 20240110
  Serious: No
  Sender: FDA-Public Use
  Company Number: US-SAREPTA THERAPEUTICS INC.-SRP2023-003525

PATIENT
  Age: 7 Year
  Sex: Male
  Weight: 31.7 kg

DRUGS (9)
  1. INVESTIGATIONAL PRODUCT [Suspect]
     Active Substance: INVESTIGATIONAL PRODUCT
     Indication: Duchenne muscular dystrophy
     Dosage: 380 MILLILITER, SINGLE
     Route: 042
     Dates: start: 20230523, end: 20230523
  2. PLACEBO [Suspect]
     Active Substance: UNSPECIFIED INGREDIENT
     Indication: Duchenne muscular dystrophy
     Dosage: 380 MILLILITER, SINGLE
     Route: 042
     Dates: start: 20230523, end: 20230523
  3. DELANDISTROGENE MOXEPARVOVEC [Suspect]
     Active Substance: DELANDISTROGENE MOXEPARVOVEC
     Indication: Duchenne muscular dystrophy
     Dosage: 380 MILLILITER, SINGLE
     Route: 042
     Dates: start: 20230523, end: 20230523
  4. ZOFRAN [Concomitant]
     Active Substance: ONDANSETRON HYDROCHLORIDE
     Indication: Nausea
     Dosage: 4 MILLIGRAM, PRN
     Route: 048
     Dates: start: 20230523
  5. EMFLAZA [Concomitant]
     Active Substance: DEFLAZACORT
     Indication: Duchenne muscular dystrophy
     Dosage: 24 MILLIGRAM, QD
     Route: 048
     Dates: start: 20211228
  6. PREDNISONE [Concomitant]
     Active Substance: PREDNISONE
     Indication: Steroid therapy
     Dosage: 37.5 MILLIGRAM, QD
     Route: 048
     Dates: start: 20230522, end: 20230711
  7. PREDNISONE [Concomitant]
     Active Substance: PREDNISONE
     Dosage: 75 MILLIGRAM, QD
     Route: 048
     Dates: start: 20230712, end: 20230814
  8. PREDNISONE [Concomitant]
     Active Substance: PREDNISONE
     Dosage: 40 MILLIGRAM, QD
     Route: 048
     Dates: start: 20230815, end: 20230821
  9. PREDNISONE [Concomitant]
     Active Substance: PREDNISONE
     Dosage: 20 MILLIGRAM, QD
     Route: 048
     Dates: start: 20230822, end: 20230828

REACTIONS (2)
  - Glutamate dehydrogenase increased [Unknown]
  - Gamma-glutamyltransferase increased [Recovered/Resolved]

NARRATIVE: CASE EVENT DATE: 20230620
